FAERS Safety Report 24118111 (Version 1)
Quarter: 2024Q3

REPORT INFORMATION
  Report Type: Report from Study
  Country: US (occurrence: None)
  Receive Date: 20240722
  Receipt Date: 20240722
  Transmission Date: 20241016
  Serious: Yes (Other)
  Sender: ASTRAZENECA
  Company Number: 2021A789560

PATIENT
  Sex: Female
  Weight: 74.8 kg

DRUGS (12)
  1. LYNPARZA [Suspect]
     Active Substance: OLAPARIB
     Indication: Fallopian tube cancer
     Route: 048
  2. VITAMINS [Concomitant]
     Active Substance: VITAMINS
  3. NOVOLOG [Concomitant]
     Active Substance: INSULIN ASPART
  4. LEVEMIR [Concomitant]
     Active Substance: INSULIN DETEMIR
  5. LISINOPRIL [Concomitant]
     Active Substance: LISINOPRIL
  6. VITAMIN B12 [Concomitant]
     Active Substance: CYANOCOBALAMIN
  7. VITAMIN B-100 COMPLEX [Concomitant]
  8. PROBIOTICS NOS [Concomitant]
     Active Substance: PROBIOTICS NOS
  9. ACETYL-L-CARNITINE HCL [Concomitant]
  10. VITAMIN D [Concomitant]
     Active Substance: VITAMIN D NOS
  11. LYSINE [Concomitant]
     Active Substance: LYSINE
  12. COENZYME Q10 [Concomitant]
     Active Substance: DIETARY SUPPLEMENT\UBIDECARENONE

REACTIONS (1)
  - Pyrexia [Not Recovered/Not Resolved]
